FAERS Safety Report 7553557-6 (Version None)
Quarter: 2011Q2

REPORT INFORMATION
  Report Type: 
  Country: None (occurrence: None)
  Receive Date: 20110614
  Receipt Date: 20110614
  Transmission Date: 20111010
  Serious: Yes (Life-Threatening)
  Sender: FDA-Public Use
  Company Number: None

PATIENT
  Age: 62 Year
  Sex: Female
  Weight: 65.7716 kg

DRUGS (1)
  1. ATELVIA [Suspect]
     Indication: BONE LOSS
     Dosage: 35 MG 1/WEEK PO
     Route: 048
     Dates: start: 20110606, end: 20110610

REACTIONS (7)
  - HEADACHE [None]
  - ARTHRALGIA [None]
  - APHAGIA [None]
  - MUSCLE SPASMS [None]
  - BACK PAIN [None]
  - INFLUENZA LIKE ILLNESS [None]
  - DYSPEPSIA [None]
